FAERS Safety Report 6159540-X (Version None)
Quarter: 2009Q2

REPORT INFORMATION
  Report Type: 
  Country: None (occurrence: None)
  Receive Date: 20090420
  Receipt Date: 20090413
  Transmission Date: 20091009
  Serious: Yes (Other)
  Sender: FDA-Public Use
  Company Number: US-JNJFOC-20090403812

PATIENT
  Sex: Female
  Weight: 72.58 kg

DRUGS (4)
  1. DURAGESIC-100 [Suspect]
     Route: 062
  2. DURAGESIC-100 [Suspect]
     Indication: BACK PAIN
     Route: 062
  3. WELLBUTRIN [Concomitant]
     Indication: DEPRESSION
     Route: 048
  4. PRISTIQ [Concomitant]
     Indication: DEPRESSION
     Route: 048

REACTIONS (3)
  - BLOOD CHOLESTEROL INCREASED [None]
  - DRUG INEFFECTIVE [None]
  - HYPOTHYROIDISM [None]
